FAERS Safety Report 15463705 (Version 1)
Quarter: 2018Q4

REPORT INFORMATION
  Report Type: Spontaneous
  Country: IN (occurrence: IN)
  Receive Date: 20181004
  Receipt Date: 20181004
  Transmission Date: 20190204
  Serious: Yes (Other)
  Sender: FDA-Public Use
  Company Number: IN-PFIZER INC-2018392728

PATIENT
  Age: 13 Year
  Sex: Male

DRUGS (2)
  1. ZOLOFT [Suspect]
     Active Substance: SERTRALINE HYDROCHLORIDE
     Indication: ADJUSTMENT DISORDER WITH DEPRESSED MOOD
     Dosage: 25-75 MG, DAILY OVER 10 DAYS
  2. ZOLOFT [Suspect]
     Active Substance: SERTRALINE HYDROCHLORIDE
     Dosage: 100 MG, DAILY 6 WEEKS

REACTIONS (4)
  - Rhabdomyolysis [Unknown]
  - Renal failure [Unknown]
  - Cardio-respiratory arrest [Unknown]
  - Trismus [Unknown]
